FAERS Safety Report 6398152-X (Version None)
Quarter: 2009Q4

REPORT INFORMATION
  Report Type: 
  Country: None (occurrence: None)
  Receive Date: 20091013
  Receipt Date: 20091008
  Transmission Date: 20100525
  Serious: Yes (Life-Threatening)
  Sender: FDA-Public Use
  Company Number: BR-JNJFOC-20091001078

PATIENT
  Sex: Female
  Weight: 3.3 kg

DRUGS (1)
  1. MYLICON GOTAS [Suspect]
     Indication: FLATULENCE
     Route: 048

REACTIONS (4)
  - CARDIAC ARREST [None]
  - CHOKING [None]
  - DYSPNOEA [None]
  - PERIPHERAL COLDNESS [None]
